FAERS Safety Report 13263925 (Version 1)
Quarter: 2017Q1

REPORT INFORMATION
  Report Type: Spontaneous
  Country: US (occurrence: US)
  Receive Date: 20170222
  Receipt Date: 20170222
  Transmission Date: 20170428
  Serious: No
  Sender: FDA-Public Use
  Company Number: None

PATIENT
  Age: 30 Year
  Sex: Female
  Weight: 72 kg

DRUGS (3)
  1. CRYSELLE [Concomitant]
     Active Substance: ETHINYL ESTRADIOL\NORGESTREL
  2. FLONASE [Concomitant]
     Active Substance: FLUTICASONE PROPIONATE
  3. STRATTERA [Suspect]
     Active Substance: ATOMOXETINE HYDROCHLORIDE
     Indication: ATTENTION DEFICIT/HYPERACTIVITY DISORDER
     Dosage: ?          QUANTITY:30 CAPSULE(S);?
     Route: 048
     Dates: start: 20150708, end: 20170203

REACTIONS (8)
  - Fatigue [None]
  - Withdrawal syndrome [None]
  - Formication [None]
  - Confusional state [None]
  - Irritability [None]
  - Headache [None]
  - Hot flush [None]
  - Dry skin [None]

NARRATIVE: CASE EVENT DATE: 20170217
